FAERS Safety Report 12262086 (Version 2)
Quarter: 2016Q2

REPORT INFORMATION
  Report Type: Spontaneous
  Country: US (occurrence: US)
  Receive Date: 20160413
  Receipt Date: 20160513
  Transmission Date: 20160815
  Serious: No
  Sender: FDA-Public Use
  Company Number: US-GLAXOSMITHKLINE-US2016GSK048511

PATIENT
  Sex: Male
  Weight: 66.21 kg

DRUGS (5)
  1. HYTRIN [Concomitant]
     Active Substance: TERAZOSIN HYDROCHLORIDE
     Dosage: 5 MG CAPSULE AS DIRECTED
     Route: 048
  2. ZOCOR [Concomitant]
     Active Substance: SIMVASTATIN
     Dosage: 20 MG, 1D ORALLY
     Route: 048
  3. XARELTO [Concomitant]
     Active Substance: RIVAROXABAN
     Dosage: 15 MG TABLET ORALLY DAILY
     Route: 048
  4. RYTHMOL SR [Suspect]
     Active Substance: PROPAFENONE HYDROCHLORIDE
     Indication: ATRIAL FIBRILLATION
     Dosage: ONE 325 MG CAPSULE, BID ORALLY
     Route: 048
     Dates: start: 201108
  5. TOPROL XL [Concomitant]
     Active Substance: METOPROLOL SUCCINATE
     Dosage: 50 MG TABLET EXTENDED RELEASE 24 HOUR
     Route: 048

REACTIONS (2)
  - Sinus bradycardia [Recovered/Resolved]
  - Drug ineffective [Unknown]
